FAERS Safety Report 16961781 (Version 1)
Quarter: 2019Q4

REPORT INFORMATION
  Report Type: Spontaneous
  Country: US (occurrence: US)
  Receive Date: 20191024
  Receipt Date: 20191024
  Transmission Date: 20200122
  Serious: Yes (Other)
  Sender: FDA-Public Use
  Company Number: None

PATIENT
  Age: 71 Year
  Sex: Male
  Weight: 113.4 kg

DRUGS (21)
  1. PROCHLORPERAZINE. [Concomitant]
     Active Substance: PROCHLORPERAZINE
  2. VITAMIN B-6 [Concomitant]
     Active Substance: PYRIDOXINE
  3. LYCOPENE [Concomitant]
     Active Substance: LYCOPENE
  4. VITAMIN B12 [Concomitant]
     Active Substance: CYANOCOBALAMIN
  5. NORMAL SALINE FLUSH [Concomitant]
     Active Substance: SODIUM CHLORIDE
  6. UBIQUINOL [Concomitant]
     Active Substance: UBIQUINOL
  7. VITAMIN C [Concomitant]
     Active Substance: ASCORBIC ACID
  8. PEPCID [Concomitant]
     Active Substance: FAMOTIDINE
  9. ALTEPLASE. [Concomitant]
     Active Substance: ALTEPLASE
  10. APPLE CIDER VINEGAR [Concomitant]
     Active Substance: APPLE CIDER VINEGAR
  11. EPIPEN [Concomitant]
     Active Substance: EPINEPHRINE
  12. SENNA [Concomitant]
     Active Substance: SENNA LEAF\SENNOSIDES\SENNOSIDES A AND B
  13. TURMERIC [Concomitant]
     Active Substance: HERBALS\TURMERIC
  14. GINGER. [Concomitant]
     Active Substance: GINGER
  15. CAPECITABINE. [Suspect]
     Active Substance: CAPECITABINE
     Dosage: 2500 MG ORAL BID X14 DAYS, 7OFF?
     Route: 048
     Dates: start: 20190827
  16. CETIRIZINE [Concomitant]
     Active Substance: CETIRIZINE HYDROCHLORIDE
  17. LEXAPRO [Concomitant]
     Active Substance: ESCITALOPRAM OXALATE
  18. PUMPKIN SEED OIL [Concomitant]
  19. VITAMIN D [Concomitant]
     Active Substance: VITAMIN D NOS
  20. OMEPRAZOLE. [Concomitant]
     Active Substance: OMEPRAZOLE
  21. HEPARIN FLUSH [Concomitant]
     Active Substance: HEPARIN SODIUM

REACTIONS (2)
  - Diarrhoea [None]
  - Palmar-plantar erythrodysaesthesia syndrome [None]

NARRATIVE: CASE EVENT DATE: 20190915
